FAERS Safety Report 6200196-5 (Version None)
Quarter: 2009Q2

REPORT INFORMATION
  Report Type: 
  Country: None (occurrence: None)
  Receive Date: 20090522
  Receipt Date: 20090515
  Transmission Date: 20091009
  Serious: Yes (Disabling, Other)
  Sender: FDA-Public Use
  Company Number: US-PFIZER INC-2009215014

PATIENT
  Sex: Female

DRUGS (1)
  1. ATORVASTATIN CALCIUM [Suspect]
     Indication: BLOOD CHOLESTEROL
     Dosage: UNK

REACTIONS (4)
  - DISABILITY [None]
  - HIP ARTHROPLASTY [None]
  - ILL-DEFINED DISORDER [None]
  - OSTEOARTHRITIS [None]
